FAERS Safety Report 14681211 (Version 1)
Quarter: 2018Q1

REPORT INFORMATION
  Report Type: Spontaneous
  Country: AU (occurrence: AU)
  Receive Date: 20180326
  Receipt Date: 20180326
  Transmission Date: 20180509
  Serious: Yes (Hospitalization, Other)
  Sender: FDA-Public Use
  Company Number: AU-SA-2018SA082724

PATIENT
  Age: 63 Year
  Sex: Male
  Weight: 116 kg

DRUGS (7)
  1. ROACCUTANE [Suspect]
     Active Substance: ISOTRETINOIN
     Route: 065
  2. KARVEA [Suspect]
     Active Substance: IRBESARTAN
     Route: 065
  3. AVAMYS [Suspect]
     Active Substance: FLUTICASONE FUROATE
     Route: 045
  4. VITAMIN D [Suspect]
     Active Substance: CHOLECALCIFEROL
     Dosage: DOSE:2000 UNIT(S)
     Route: 065
  5. LANTUS [Suspect]
     Active Substance: INSULIN GLARGINE
     Dosage: DOSE:25 UNIT(S)
     Route: 051
     Dates: start: 20170523, end: 20170605
  6. CRESTOR [Suspect]
     Active Substance: ROSUVASTATIN CALCIUM
     Route: 065
  7. JARDIAMET [Suspect]
     Active Substance: EMPAGLIFLOZIN\METFORMIN HYDROCHLORIDE
     Route: 065

REACTIONS (6)
  - Nausea [Recovered/Resolved]
  - Dyspnoea [Recovered/Resolved]
  - Euglycaemic diabetic ketoacidosis [Recovered/Resolved]
  - Eructation [Recovered/Resolved]
  - Gastrooesophageal reflux disease [Recovered/Resolved]
  - Vomiting [Recovered/Resolved]

NARRATIVE: CASE EVENT DATE: 20170605
